FAERS Safety Report 9479080 (Version 1)
Quarter: 2013Q3

REPORT INFORMATION
  Report Type: Spontaneous
  Country: US (occurrence: US)
  Receive Date: 20130827
  Receipt Date: 20130827
  Transmission Date: 20140515
  Serious: Yes (Other)
  Sender: FDA-Public Use
  Company Number: US-TEVA-427439USA

PATIENT
  Sex: Male

DRUGS (7)
  1. NUVIGIL [Suspect]
     Route: 048
  2. ANTIHISTAMINE [Suspect]
  3. EFFEXOR [Concomitant]
  4. LITHIUM [Concomitant]
  5. LATUDA [Concomitant]
  6. NASONEX [Concomitant]
  7. KLONOPIN [Concomitant]

REACTIONS (3)
  - Candida infection [Unknown]
  - Malaise [Unknown]
  - Dizziness [Unknown]
